FAERS Safety Report 23339503 (Version 1)
Quarter: 2023Q4

REPORT INFORMATION
  Report Type: Report from Study
  Country: GB (occurrence: GB)
  Receive Date: 20231226
  Receipt Date: 20231226
  Transmission Date: 20240110
  Serious: Yes (Hospitalization, Other)
  Sender: FDA-Public Use
  Company Number: GB-002147023-NVSC2022GB122191

PATIENT
  Sex: Female

DRUGS (1)
  1. ERELZI [Suspect]
     Active Substance: ETANERCEPT-SZZS
     Indication: Rheumatoid arthritis
     Dosage: 50 MG, QW (4 PRE-FILLED DISPOSABLE INJECTIONS)
     Route: 058

REACTIONS (7)
  - Chondrocalcinosis [Unknown]
  - Immobile [Unknown]
  - Transient ischaemic attack [Unknown]
  - Sepsis [Unknown]
  - COVID-19 [Unknown]
  - Lower respiratory tract infection [Unknown]
  - Product dose omission issue [Unknown]
